FAERS Safety Report 13092400 (Version 1)
Quarter: 2017Q1

REPORT INFORMATION
  Report Type: Spontaneous
  Country: US (occurrence: US)
  Receive Date: 20170106
  Receipt Date: 20170106
  Transmission Date: 20170428
  Serious: No
  Sender: FDA-Public Use
  Company Number: US-JNJFOC-20161113979

PATIENT
  Age: 73 Year
  Sex: Female
  Weight: 49.9 kg

DRUGS (2)
  1. TYLENOL EXTRA STRENGTH [Suspect]
     Active Substance: ACETAMINOPHEN
     Indication: PAIN IN EXTREMITY
     Dosage: TWICE TOTAL
     Route: 048
     Dates: start: 20161110
  2. PRADAXA [Concomitant]
     Active Substance: DABIGATRAN ETEXILATE MESYLATE
     Indication: CARDIAC DISORDER
     Route: 065

REACTIONS (1)
  - Intentional underdose [Unknown]

NARRATIVE: CASE EVENT DATE: 20161110
